FAERS Safety Report 9908730 (Version 1)
Quarter: 2014Q1

REPORT INFORMATION
  Report Type: Spontaneous
  Country: US (occurrence: None)
  Receive Date: 20140212
  Receipt Date: 20140212
  Transmission Date: 20141002
  Serious: Yes (Other)
  Sender: FDA-Public Use
  Company Number: None

PATIENT
  Age: 55 Year
  Sex: Female

DRUGS (1)
  1. AUBAGIO [Suspect]
     Indication: MULTIPLE SCLEROSIS
     Route: 048
     Dates: start: 20130711, end: 20140204

REACTIONS (5)
  - Diarrhoea [None]
  - Weight decreased [None]
  - Hypersomnia [None]
  - Restlessness [None]
  - Sensation of heaviness [None]
